FAERS Safety Report 4693299-8 (Version None)
Quarter: 2005Q2

REPORT INFORMATION
  Report Type: 
  Country: None (occurrence: None)
  Receive Date: 20050617
  Receipt Date: 20050608
  Transmission Date: 20051028
  Serious: Yes (Death)
  Sender: FDA-Public Use
  Company Number: JP-GLAXOSMITHKLINE-B0384265A

PATIENT
  Age: 23 Year
  Sex: Male
  Weight: 70 kg

DRUGS (5)
  1. PAXIL [Suspect]
     Indication: SUICIDE ATTEMPT
     Dosage: 440MG PER DAY
     Route: 048
     Dates: start: 20050608, end: 20050608
  2. URSODEOXYCHOLIC ACID [Concomitant]
     Route: 048
  3. URSODIOL [Concomitant]
     Route: 048
  4. LORAZEPAM [Concomitant]
     Route: 048
  5. CARBAMAZEPINE [Concomitant]
     Route: 048

REACTIONS (2)
  - COMPLETED SUICIDE [None]
  - INTENTIONAL MISUSE [None]
